FAERS Safety Report 25136809 (Version 1)
Quarter: 2025Q1

REPORT INFORMATION
  Report Type: Report from Study
  Country: CZ (occurrence: CZ)
  Receive Date: 20250328
  Receipt Date: 20250328
  Transmission Date: 20250409
  Serious: Yes (Hospitalization, Other)
  Sender: BAYER HEALTHCARE PHARMACEUTICALS INC.
  Company Number: CZ-BAYER-2025A040157

PATIENT
  Age: 31 Year
  Sex: Female
  Weight: 52 kg

DRUGS (1)
  1. MIRENA [Suspect]
     Active Substance: LEVONORGESTREL
     Indication: Contraception
     Dosage: 20?G/DAY
     Route: 015
     Dates: start: 20240108, end: 20240531

REACTIONS (4)
  - Uterine perforation [Recovered/Resolved]
  - Uterine adhesions [Recovered/Resolved]
  - Device dislocation [Recovered/Resolved]
  - Device issue [None]

NARRATIVE: CASE EVENT DATE: 20240205
